FAERS Safety Report 6914414-9 (Version None)
Quarter: 2010Q3

REPORT INFORMATION
  Report Type: 
  Country: None (occurrence: None)
  Receive Date: 20100805
  Receipt Date: 20100805
  Transmission Date: 20110219
  Serious: Yes (Hospitalization)
  Sender: FDA-Public Use
  Company Number: None

PATIENT
  Sex: Female
  Weight: 48.5 kg

DRUGS (14)
  1. GEMCITABINE HCL [Suspect]
     Dosage: 4443 MG
  2. TARCEVA [Suspect]
     Dosage: 3100 MG
  3. ADVAIR DISKUS 100/50 [Concomitant]
  4. AVAPRO [Concomitant]
  5. BONIVA [Concomitant]
  6. DOXYCYCLINE [Concomitant]
  7. M.V.I. [Concomitant]
  8. NASONEX [Concomitant]
  9. PEPCID [Concomitant]
  10. SINGULAIR [Concomitant]
  11. SPIRIVA [Concomitant]
  12. SYNTHROID [Concomitant]
  13. VENTOLIN [Concomitant]
  14. ZYRTEC [Concomitant]

REACTIONS (8)
  - BLOOD CREATININE INCREASED [None]
  - DIARRHOEA [None]
  - DIZZINESS POSTURAL [None]
  - FALL [None]
  - FATIGUE [None]
  - HEAD INJURY [None]
  - HYPOTENSION [None]
  - PYREXIA [None]
